FAERS Safety Report 7911407-X (Version None)
Quarter: 2011Q4

REPORT INFORMATION
  Report Type: 
  Country: None (occurrence: None)
  Receive Date: 20111114
  Receipt Date: 20111011
  Transmission Date: 20120403
  Serious: Yes (Other)
  Sender: FDA-Public Use
  Company Number: PL-UCBSA-043482

PATIENT
  Age: 12 Year
  Sex: Male
  Weight: 47 kg

DRUGS (8)
  1. KEPPRA [Suspect]
     Indication: PARTIAL SEIZURES
     Route: 048
     Dates: start: 20111001, end: 20111001
  2. KEPPRA [Suspect]
     Route: 048
     Dates: start: 20111001, end: 20111001
  3. VALPROATE SODIUM [Suspect]
     Indication: PARTIAL SEIZURES
     Route: 048
     Dates: start: 20111001
  4. LAMOTRYGINE [Suspect]
     Indication: PARTIAL SEIZURES
     Route: 048
     Dates: start: 20111001
  5. KEPPRA [Suspect]
     Route: 048
     Dates: start: 20111001, end: 20111001
  6. LAMOTRYGINE [Suspect]
     Indication: GRAND MAL CONVULSION
     Route: 048
     Dates: start: 20111001
  7. KEPPRA [Suspect]
     Indication: GRAND MAL CONVULSION
     Route: 048
     Dates: start: 20111001, end: 20111001
  8. VALPROATE SODIUM [Suspect]
     Indication: GRAND MAL CONVULSION
     Route: 048
     Dates: start: 20111001

REACTIONS (5)
  - CONVULSION [None]
  - ABNORMAL BEHAVIOUR [None]
  - MODERATE MENTAL RETARDATION [None]
  - BRAIN HYPOXIA [None]
  - HEMIPARESIS [None]
